FAERS Safety Report 10289867 (Version 1)
Quarter: 2014Q3

REPORT INFORMATION
  Report Type: Spontaneous
  Country: TN (occurrence: None)
  Receive Date: 20140708
  Receipt Date: 20140708
  Transmission Date: 20150326
  Serious: Yes (Life-Threatening, Other)
  Sender: FDA-Public Use
  Company Number: 2014PRN00007

PATIENT
  Age: 50 Year
  Sex: Female

DRUGS (1)
  1. LEVETIRACTAM [Suspect]
     Active Substance: LEVETIRACETAM
     Indication: EPILEPSY
     Dates: start: 2013

REACTIONS (5)
  - Cardio-respiratory arrest [None]
  - Drug hypersensitivity [None]
  - Drug reaction with eosinophilia and systemic symptoms [None]
  - Multi-organ disorder [None]
  - Status epilepticus [None]

NARRATIVE: CASE EVENT DATE: 2013
